FAERS Safety Report 14166332 (Version 2)
Quarter: 2017Q4

REPORT INFORMATION
  Report Type: Spontaneous
  Country: TR (occurrence: TR)
  Receive Date: 20171107
  Receipt Date: 20171124
  Transmission Date: 20180321
  Serious: Yes (Hospitalization, Other)
  Sender: FDA-Public Use
  Company Number: TR-ASTRAZENECA-2017SF12427

PATIENT
  Age: 73 Year
  Sex: Male

DRUGS (1)
  1. FORZIGA [Suspect]
     Active Substance: DAPAGLIFLOZIN
     Indication: DIABETES MELLITUS
     Route: 048

REACTIONS (2)
  - Toe amputation [Unknown]
  - Wound complication [Unknown]

NARRATIVE: CASE EVENT DATE: 20171027
